FAERS Safety Report 25975969 (Version 2)
Quarter: 2025Q4

REPORT INFORMATION
  Report Type: Report from Study
  Country: CA (occurrence: CA)
  Receive Date: 20251029
  Receipt Date: 20251106
  Transmission Date: 20260118
  Serious: Yes (Other)
  Sender: HLS THERAPEUTICS
  Company Number: CA-HLS-202502801

PATIENT
  Age: 73 Year
  Sex: Female
  Weight: 96 kg

DRUGS (1)
  1. CLOZARIL [Suspect]
     Active Substance: CLOZAPINE
     Indication: Schizophrenia
     Dosage: AT BEDTIME
     Route: 048
     Dates: start: 20250920, end: 20251017

REACTIONS (4)
  - White blood cell count decreased [Recovered/Resolved]
  - COVID-19 [Unknown]
  - Neutrophil count decreased [Recovered/Resolved]
  - Treatment noncompliance [Unknown]

NARRATIVE: CASE EVENT DATE: 20251015
